FAERS Safety Report 9464111 (Version 1)
Quarter: 2013Q3

REPORT INFORMATION
  Report Type: Spontaneous
  Country: FR (occurrence: FR)
  Receive Date: 20130819
  Receipt Date: 20130819
  Transmission Date: 20140515
  Serious: Yes (Life-Threatening, Hospitalization)
  Sender: FDA-Public Use
  Company Number: FR-MYLANLABS-2013S1017476

PATIENT
  Age: 30 Year
  Sex: Female

DRUGS (1)
  1. IBUPROFEN TABLETS, USP 200MG (ORANGE TABLET) (AMNEAL) [Suspect]
     Indication: OVERDOSE
     Dosage: MORE THAN 20 TABLETS OF IBUPROFEN 400MG (REPRESENTING 152 MG/KG)
     Route: 048

REACTIONS (3)
  - Inappropriate antidiuretic hormone secretion [Recovered/Resolved]
  - Overdose [Recovered/Resolved]
  - Renal failure acute [Recovered/Resolved]
